FAERS Safety Report 9161276 (Version 1)
Quarter: 2013Q1

REPORT INFORMATION
  Report Type: Spontaneous
  Country: US (occurrence: US)
  Receive Date: 20130313
  Receipt Date: 20130313
  Transmission Date: 20140127
  Serious: No
  Sender: FDA-Public Use
  Company Number: US-009507513-1303USA005207

PATIENT
  Sex: Female

DRUGS (2)
  1. DULERA [Suspect]
     Dosage: 200/5 MICROGRAMS, 2 INHALATIONS, BID
     Route: 055
     Dates: start: 20130214
  2. DULERA [Suspect]
     Dosage: 200/5 MICROGRAMS, 2 INHALATIONS, BID
     Route: 055
     Dates: start: 2010

REACTIONS (5)
  - Drug dose omission [Unknown]
  - Drug dose omission [Unknown]
  - Drug dose omission [Unknown]
  - Product quality issue [Unknown]
  - No adverse event [Unknown]
